FAERS Safety Report 25847537 (Version 1)
Quarter: 2025Q3

REPORT INFORMATION
  Report Type: Spontaneous
  Country: US (occurrence: None)
  Receive Date: 20250924
  Receipt Date: 20250924
  Transmission Date: 20251020
  Serious: No
  Sender: FDA-CTU
  Company Number: None

PATIENT
  Age: 61 Year
  Sex: Female
  Weight: 68.95 kg

DRUGS (4)
  1. METHYLPREDNISOLONE SODIUM SUCCINATE [Suspect]
     Active Substance: METHYLPREDNISOLONE SODIUM SUCCINATE
  2. GammaGARD Liq 10% Vial 30GM [Concomitant]
     Dates: start: 20250922
  3. Diphenhydramine HCl 25MG UD Cap [Concomitant]
     Dates: start: 20250922
  4. Acetaminophen 325 MG Tablet [Concomitant]
     Dates: start: 20250922

REACTIONS (2)
  - Product dispensing error [None]
  - Incorrect dose administered [None]

NARRATIVE: CASE EVENT DATE: 20250922
